FAERS Safety Report 25466920 (Version 1)
Quarter: 2025Q2

REPORT INFORMATION
  Report Type: Report from Study
  Country: TW (occurrence: TW)
  Receive Date: 20250623
  Receipt Date: 20250623
  Transmission Date: 20250717
  Serious: Yes (Death)
  Sender: ABBVIE
  Company Number: TW-ABBVIE-6339201

PATIENT
  Age: 57 Year
  Sex: Male
  Weight: 67 kg

DRUGS (3)
  1. HUMIRA [Suspect]
     Active Substance: ADALIMUMAB
     Indication: Ankylosing spondylitis
     Route: 058
     Dates: start: 20230310, end: 20250530
  2. SULFASALAZINE [Concomitant]
     Active Substance: SULFASALAZINE
     Indication: Ankylosing spondylitis
     Route: 048
     Dates: start: 20210302
  3. MELOXICAM [Concomitant]
     Active Substance: MELOXICAM
     Indication: Ankylosing spondylitis
     Route: 048
     Dates: start: 20230106

REACTIONS (1)
  - End stage renal disease [Fatal]
